FAERS Safety Report 8615880-3 (Version None)
Quarter: 2012Q3

REPORT INFORMATION
  Report Type: 
  Country: None (occurrence: None)
  Receive Date: 20120823
  Receipt Date: 20120820
  Transmission Date: 20120928
  Serious: Yes (Hospitalization)
  Sender: FDA-Public Use
  Company Number: DE-ROCHE-1104715

PATIENT
  Sex: Male

DRUGS (5)
  1. MABTHERA [Suspect]
     Dates: start: 20090427
  2. MABTHERA [Suspect]
     Dates: start: 20100511
  3. MABTHERA [Suspect]
     Dates: start: 20091117
  4. LEFLUNOMIDE [Concomitant]
     Indication: RHEUMATOID ARTHRITIS
     Dates: start: 20071101, end: 20110101
  5. MABTHERA [Suspect]
     Indication: RHEUMATOID ARTHRITIS
     Dates: start: 20081022, end: 20101103

REACTIONS (1)
  - NON-SMALL CELL LUNG CANCER [None]
